FAERS Safety Report 25101125 (Version 2)
Quarter: 2025Q2

REPORT INFORMATION
  Report Type: Spontaneous
  Country: US (occurrence: US)
  Receive Date: 20250320
  Receipt Date: 20250401
  Transmission Date: 20250716
  Serious: Yes (Other)
  Sender: TEVA
  Company Number: US-TEVA-VS-3309078

PATIENT
  Age: 3 Year
  Sex: Female

DRUGS (2)
  1. PREDNISOLONE [Suspect]
     Active Substance: PREDNISOLONE
     Indication: Acquired generalised lipodystrophy
     Dosage: SCHEDULED TO RECEIVE 2 MG/KG/DAY FOR 1.5 MONTHS WITH A SUBSEQUENT 2 WEEK TAPER
     Route: 048
  2. HYDROXYCHLOROQUINE [Concomitant]
     Active Substance: HYDROXYCHLOROQUINE
     Indication: Acquired generalised lipodystrophy
     Route: 065

REACTIONS (3)
  - Rebound effect [Unknown]
  - Acquired generalised lipodystrophy [Recovered/Resolved]
  - Panniculitis [Recovered/Resolved]
